FAERS Safety Report 9288383 (Version 1)
Quarter: 2013Q2

REPORT INFORMATION
  Report Type: Spontaneous
  Country: US (occurrence: None)
  Receive Date: 20130513
  Receipt Date: 20130513
  Transmission Date: 20140414
  Serious: Yes (Other)
  Sender: FDA-Public Use
  Company Number: None

PATIENT
  Age: 50 Year
  Sex: Female
  Weight: 83.92 kg

DRUGS (2)
  1. ABILIFY [Suspect]
     Indication: BIPOLAR DISORDER
     Route: 048
     Dates: start: 20040101, end: 20130119
  2. ABILIFY [Suspect]
     Indication: MAJOR DEPRESSION
     Route: 048
     Dates: start: 20040101, end: 20130119

REACTIONS (10)
  - Tremor [None]
  - Drug withdrawal syndrome [None]
  - Fatigue [None]
  - Depression [None]
  - Petit mal epilepsy [None]
  - Asthenia [None]
  - Nausea [None]
  - Dizziness [None]
  - Insomnia [None]
  - Diarrhoea [None]
